APPROVED DRUG PRODUCT: NANDROLONE DECANOATE
Active Ingredient: NANDROLONE DECANOATE
Strength: 200MG/ML
Dosage Form/Route: INJECTABLE;INJECTION
Application: A091252 | Product #001
Applicant: AMERICAN REGENT INC
Approved: Aug 30, 2010 | RLD: No | RS: No | Type: DISCN